FAERS Safety Report 9278779 (Version 1)
Quarter: 2013Q2

REPORT INFORMATION
  Report Type: Spontaneous
  Country: US (occurrence: None)
  Receive Date: 20130506
  Receipt Date: 20130506
  Transmission Date: 20140414
  Serious: Yes (Hospitalization)
  Sender: FDA-Public Use
  Company Number: None

PATIENT
  Age: 1 Year
  Sex: Female
  Weight: 10 kg

DRUGS (2)
  1. VINCRISTINE SULFATE [Suspect]
  2. DEXAMETHASONE [Suspect]

REACTIONS (4)
  - Bezoar [None]
  - Small intestinal perforation [None]
  - Haemoglobin decreased [None]
  - Peritonitis [None]
